FAERS Safety Report 4285678-8 (Version None)
Quarter: 2004Q1

REPORT INFORMATION
  Report Type: 
  Country: None (occurrence: None)
  Receive Date: 20040203
  Receipt Date: 20040126
  Transmission Date: 20041129
  Serious: Yes (Hospitalization)
  Sender: FDA-Public Use
  Company Number: NL-JNJFOC-20030805171

PATIENT
  Age: 50 Year
  Sex: Female

DRUGS (7)
  1. REMICADE [Suspect]
     Indication: RHEUMATOID ARTHRITIS
     Dosage: 6 MG/KG, 1 IN 1 DAY, INTRAVENOUS
     Route: 042
     Dates: start: 20020122
  2. METHOTREXATE [Concomitant]
  3. FOLIC ACID [Concomitant]
  4. PANTOZOL (PANTOPRAZOLE SODIUM) [Concomitant]
  5. TELFAST (FEXOFENADINE) [Concomitant]
  6. DYTAURESE (DYTA-URESE) [Concomitant]
  7. RERROFUMARATE (FERROUS FUMARATE) [Concomitant]

REACTIONS (3)
  - DISEASE RECURRENCE [None]
  - RED BLOOD CELL SEDIMENTATION RATE INCREASED [None]
  - RHEUMATOID ARTHRITIS [None]
